FAERS Safety Report 4359252-9 (Version None)
Quarter: 2004Q2

REPORT INFORMATION
  Report Type: 
  Country: None (occurrence: None)
  Receive Date: 20040512
  Receipt Date: 20040426
  Transmission Date: 20050107
  Serious: Yes (Other)
  Sender: FDA-Public Use
  Company Number: USA040465795

PATIENT
  Age: 79 Year
  Sex: Male
  Weight: 73 kg

DRUGS (2)
  1. HUMALOG [Suspect]
     Dosage: 4 U/3 DAY
     Dates: start: 20000101
  2. LANTUS [Concomitant]

REACTIONS (4)
  - CORNEAL TRANSPLANT [None]
  - DIABETES MELLITUS INADEQUATE CONTROL [None]
  - MEDICATION ERROR [None]
  - PHARMACEUTICAL PRODUCT COMPLAINT [None]
